FAERS Safety Report 22541958 (Version 2)
Quarter: 2023Q2

REPORT INFORMATION
  Report Type: Spontaneous
  Country: CA (occurrence: CA)
  Receive Date: 20230609
  Receipt Date: 20230622
  Transmission Date: 20230721
  Serious: Yes (Other)
  Sender: FDA-Public Use
  Company Number: CA-PFIZER INC-PV202300102412

PATIENT
  Age: 74 Year
  Sex: Female

DRUGS (1)
  1. IBRANCE [Suspect]
     Active Substance: PALBOCICLIB
     Indication: Breast cancer metastatic
     Dosage: 125 MG, CYCLIC (DAILY,TAKE 3 WEEKS ON AND 1 WEEK OFF)
     Dates: start: 20220128, end: 202303

REACTIONS (2)
  - Second primary malignancy [Unknown]
  - Hepatocellular carcinoma [Unknown]
